FAERS Safety Report 8550252-1 (Version None)
Quarter: 2012Q3

REPORT INFORMATION
  Report Type: 
  Country: None (occurrence: None)
  Receive Date: 20120730
  Receipt Date: 20120725
  Transmission Date: 20120928
  Serious: Yes (Hospitalization, Other)
  Sender: FDA-Public Use
  Company Number: PHHY2010BR40506

PATIENT
  Sex: Female
  Weight: 120 kg

DRUGS (7)
  1. AMLODOPINE BESYLATE AND VALSARTAN [Suspect]
     Dosage: 0.75 DF (320/10 MG), DAILY (HAL IN THE MORNING AND 0.25 IN THE AFTERNOON)
     Dates: start: 20090101
  2. PROPRANOLOL [Concomitant]
     Indication: HYPERTENSION
     Dosage: 40 MG, DAILY
     Route: 048
  3. AMLODOPINE BESYLATE AND VALSARTAN [Suspect]
     Dosage: 1 DF (160/10) + 1 DF(80/5 MG), MORNING AND AFTERNOON RESPECTIVELY
     Route: 048
  4. METHYLDOPA [Concomitant]
     Indication: HYPERTENSION
     Dosage: 750 MG, TID (6AM- 2PM- 11PM)
     Route: 048
  5. AMLODOPINE BESYLATE AND VALSARTAN [Suspect]
     Indication: HYPERTENSION
     Dosage: 1 DF (160/10 MG), BID (MORNING + AFTERNOON)
  6. AMLODOPINE BESYLATE AND VALSARTAN [Suspect]
     Dosage: 1 DF (160/10 MG), DAILY
     Route: 048
  7. PANTOPRAZOLE [Concomitant]
     Indication: HIATUS HERNIA
     Dosage: 20 MG, DAILY
     Route: 048

REACTIONS (8)
  - HYPERTENSION [None]
  - HYPOAESTHESIA [None]
  - BLOOD PRESSURE FLUCTUATION [None]
  - DIZZINESS [None]
  - WRONG TECHNIQUE IN DRUG USAGE PROCESS [None]
  - HEAD DISCOMFORT [None]
  - AGITATION [None]
  - ANXIETY [None]
